FAERS Safety Report 24844161 (Version 2)
Quarter: 2025Q1

REPORT INFORMATION
  Report Type: Spontaneous
  Country: US (occurrence: US)
  Receive Date: 20250115
  Receipt Date: 20250301
  Transmission Date: 20250408
  Serious: No
  Sender: SANOFI AVENTIS
  Company Number: US-SA-2025SA012366

PATIENT
  Age: 44 Year
  Sex: Female

DRUGS (2)
  1. DUPIXENT [Suspect]
     Active Substance: DUPILUMAB
     Indication: Eczema
     Route: 058
     Dates: start: 202410, end: 202410
  2. DUPIXENT [Suspect]
     Active Substance: DUPILUMAB
     Dosage: 300 MG, QOW
     Route: 058
     Dates: start: 2024

REACTIONS (9)
  - Ocular hyperaemia [Not Recovered/Not Resolved]
  - Eye swelling [Recovering/Resolving]
  - Vision blurred [Unknown]
  - Eye pruritus [Recovering/Resolving]
  - Eczema [Recovering/Resolving]
  - Rash erythematous [Unknown]
  - Pruritus [Unknown]
  - Burning sensation [Unknown]
  - Condition aggravated [Unknown]
